FAERS Safety Report 6306709-7 (Version None)
Quarter: 2009Q3

REPORT INFORMATION
  Report Type: 
  Country: None (occurrence: None)
  Receive Date: 20090812
  Receipt Date: 20090515
  Transmission Date: 20100115
  Serious: No
  Sender: FDA-Public Use
  Company Number: A0784602A

PATIENT
  Age: 58 Year
  Sex: Female

DRUGS (9)
  1. VERAMYST [Suspect]
     Indication: ASTHMA
     Dosage: 2SPR TWICE PER DAY
     Route: 045
     Dates: start: 20080101, end: 20090201
  2. ALBUTEROL SULFATE [Suspect]
     Route: 055
     Dates: start: 20090201
  3. SYMBICORT [Concomitant]
  4. FLONASE [Concomitant]
  5. SINGULAIR [Concomitant]
  6. PSEUDOEPHEDRINE HCL [Concomitant]
  7. ACIPHEX [Concomitant]
  8. SIMVASTATIN [Concomitant]
  9. PROAIR HFA [Concomitant]

REACTIONS (2)
  - EYE SWELLING [None]
  - INTRAOCULAR PRESSURE INCREASED [None]
